FAERS Safety Report 4636713-6 (Version None)
Quarter: 2005Q2

REPORT INFORMATION
  Report Type: 
  Country: None (occurrence: None)
  Receive Date: 20050414
  Receipt Date: 20050408
  Transmission Date: 20051028
  Serious: Yes (Hospitalization)
  Sender: FDA-Public Use
  Company Number: 2005054433

PATIENT
  Age: 67 Year
  Sex: Male
  Weight: 76 kg

DRUGS (2)
  1. TAHOR (ATORVASTATIN) [Suspect]
     Indication: DYSLIPIDAEMIA
     Dosage: 10 MG (1 IN 1 D), ORAL
     Route: 048
     Dates: start: 20010901, end: 20040601
  2. GLICLAZIDE (GLICLAZIDE) [Concomitant]

REACTIONS (5)
  - ANTI-NEUTROPHIL CYTOPLASMIC ANTIBODY POSITIVE VASCULITIS [None]
  - ANTINUCLEAR ANTIBODY POSITIVE [None]
  - CUTANEOUS VASCULITIS [None]
  - PRURITUS [None]
  - TOXIC SKIN ERUPTION [None]
